FAERS Safety Report 20088175 (Version 2)
Quarter: 2021Q4

REPORT INFORMATION
  Report Type: Report from Study
  Country: FR (occurrence: FR)
  Receive Date: 20211118
  Receipt Date: 20211126
  Transmission Date: 20220303
  Serious: Yes (Death)
  Sender: FDA-Public Use
  Company Number: FR-ABBVIE-21K-056-4166877-00

PATIENT
  Age: 71 Year
  Sex: Male
  Weight: 65 kg

DRUGS (7)
  1. VENETOCLAX [Suspect]
     Active Substance: VENETOCLAX
     Indication: Chronic lymphocytic leukaemia
     Route: 048
     Dates: start: 20210927, end: 20211004
  2. VENETOCLAX [Suspect]
     Active Substance: VENETOCLAX
     Route: 048
     Dates: start: 20211005, end: 20211011
  3. VENETOCLAX [Suspect]
     Active Substance: VENETOCLAX
     Route: 048
     Dates: start: 20211012, end: 20211017
  4. ALLOPURINOL [Concomitant]
     Active Substance: ALLOPURINOL
     Indication: Hypouricaemia
     Dates: start: 20210926, end: 20211018
  5. VALACYCLOVIR HYDROCHLORIDE [Concomitant]
     Active Substance: VALACYCLOVIR HYDROCHLORIDE
     Indication: Antiviral prophylaxis
     Dates: start: 20210927, end: 20211103
  6. BACTRIM [Concomitant]
     Active Substance: SULFAMETHOXAZOLE\TRIMETHOPRIM
     Indication: Infection prophylaxis
     Dates: start: 20210927, end: 20211103
  7. LEUCOVORIN CALCIUM [Concomitant]
     Active Substance: LEUCOVORIN CALCIUM
     Indication: Prophylaxis
     Dates: start: 20210927, end: 20211103

REACTIONS (2)
  - COVID-19 pneumonia [Fatal]
  - Headache [Unknown]

NARRATIVE: CASE EVENT DATE: 20210928
